FAERS Safety Report 4424950-5 (Version None)
Quarter: 2004Q3

REPORT INFORMATION
  Report Type: 
  Country: None (occurrence: None)
  Receive Date: 20040719
  Receipt Date: 20030217
  Transmission Date: 20050211
  Serious: Yes (Hospitalization)
  Sender: FDA-Public Use
  Company Number: 169992

PATIENT
  Age: 58 Year
  Sex: Female
  Weight: 68.0396 kg

DRUGS (9)
  1. AVONEX [Suspect]
     Indication: MULTIPLE SCLEROSIS
     Dosage: 30 MCG QW IM
     Dates: start: 19970101
  2. AMANTADINE HCL [Concomitant]
  3. CELEBREX [Concomitant]
  4. PREMARIN [Concomitant]
  5. HYDROCHLOROTHIAZIDE [Concomitant]
  6. ADVAIR DISKUS 100/50 [Concomitant]
  7. SOY (NOS) [Concomitant]
  8. CALCIUM [Concomitant]
  9. VITAMIN E [Concomitant]

REACTIONS (6)
  - ABDOMINAL PAIN UPPER [None]
  - CHOLELITHIASIS [None]
  - DYSPEPSIA [None]
  - GASTROOESOPHAGEAL REFLUX DISEASE [None]
  - OSTEOPOROSIS [None]
  - PANCREATITIS [None]
